FAERS Safety Report 7656855-0 (Version None)
Quarter: 2011Q3

REPORT INFORMATION
  Report Type: 
  Country: None (occurrence: None)
  Receive Date: 20110804
  Receipt Date: 20110725
  Transmission Date: 20111222
  Serious: Yes (Other)
  Sender: FDA-Public Use
  Company Number: US-JNJFOC-20110711268

PATIENT
  Sex: Female
  Weight: 63.05 kg

DRUGS (3)
  1. ASPIRIN [Concomitant]
     Indication: ANTICOAGULANT THERAPY
     Route: 048
  2. CALCIUM AND MAGNESIUM [Concomitant]
     Indication: MEDICAL DIET
     Route: 048
  3. STELARA [Suspect]
     Indication: PSORIASIS
     Route: 058
     Dates: start: 20091101

REACTIONS (1)
  - SQUAMOUS CELL CARCINOMA OF SKIN [None]
